FAERS Safety Report 10014804 (Version 1)
Quarter: 2014Q1

REPORT INFORMATION
  Report Type: Spontaneous
  Country: SE (occurrence: SE)
  Receive Date: 20140317
  Receipt Date: 20140317
  Transmission Date: 20141002
  Serious: Yes (Hospitalization, Disabling)
  Sender: FDA-Public Use
  Company Number: SE-B.I. PHARMACEUTICALS,INC./RIDGEFIELD-2014-BI-11408SW

PATIENT
  Age: 72 Year
  Sex: Male

DRUGS (4)
  1. PRADAXA [Suspect]
     Indication: ATRIAL FIBRILLATION
     Dosage: 300 MG
     Route: 065
     Dates: start: 20120430, end: 20131005
  2. WARAN [Concomitant]
     Route: 065
  3. INOHEP [Concomitant]
     Route: 065
  4. TROMBYL [Concomitant]
     Route: 065

REACTIONS (1)
  - Mesenteric vascular occlusion [Unknown]
